FAERS Safety Report 24670348 (Version 2)
Quarter: 2025Q1

REPORT INFORMATION
  Report Type: Spontaneous
  Country: US (occurrence: US)
  Receive Date: 20241127
  Receipt Date: 20250214
  Transmission Date: 20250409
  Serious: Yes (Hospitalization)
  Sender: DOMPE FARMACEUTICI
  Company Number: US-FARMAPROD-202411-3961

PATIENT
  Age: 77 Year
  Sex: Male

DRUGS (19)
  1. OXERVATE [Suspect]
     Active Substance: CENEGERMIN-BKBJ
     Indication: Neurotrophic keratopathy
     Route: 047
     Dates: start: 20241024
  2. AIRSUPRA [Concomitant]
     Active Substance: ALBUTEROL SULFATE\BUDESONIDE
  3. AMOXICILLIN [Concomitant]
     Active Substance: AMOXICILLIN
  4. COMBIVENT RESPIMAT [Concomitant]
     Active Substance: ALBUTEROL SULFATE\IPRATROPIUM BROMIDE
  5. DIGOXIN [Concomitant]
     Active Substance: DIGOXIN
  6. DILTIAZEM [Concomitant]
     Active Substance: DILTIAZEM
  7. DOXYCYCLINE HYCLATE [Concomitant]
     Active Substance: DOXYCYCLINE HYCLATE
  8. ELIQUIS [Concomitant]
     Active Substance: APIXABAN
  9. FINASTERIDE [Concomitant]
     Active Substance: FINASTERIDE
  10. FLUTICASONE [Concomitant]
     Active Substance: FLUTICASONE
  11. ISONIAZID [Concomitant]
     Active Substance: ISONIAZID
  12. LEVOTHYROXINE [Concomitant]
     Active Substance: LEVOTHYROXINE
  13. LISINOPRIL [Concomitant]
     Active Substance: LISINOPRIL
  14. METOPROLOL TARTRATE [Concomitant]
     Active Substance: METOPROLOL TARTRATE
  15. OMEGA 3/DHA/EPA/FISH OIL [Concomitant]
  16. QUETIAPINE [Concomitant]
     Active Substance: QUETIAPINE
  17. TAMSULOSIN [Concomitant]
     Active Substance: TAMSULOSIN
  18. ERYTHROMYCIN [Concomitant]
     Active Substance: ERYTHROMYCIN
  19. VIGAMOX [Concomitant]
     Active Substance: MOXIFLOXACIN HYDROCHLORIDE

REACTIONS (1)
  - Cellulitis [Recovered/Resolved]
